FAERS Safety Report 7331108-9 (Version None)
Quarter: 2011Q1

REPORT INFORMATION
  Report Type: 
  Country: None (occurrence: None)
  Receive Date: 20110224
  Receipt Date: 20110211
  Transmission Date: 20110831
  Serious: Yes (Congenital Anomaly, Other)
  Sender: FDA-Public Use
  Company Number: 022550

PATIENT
  Weight: 3.2 kg

DRUGS (2)
  1. SPECIAFOLDINE [Concomitant]
  2. KEPPRA [Suspect]
     Indication: EPILEPSY
     Dosage: (2.5 G TRANSPLACENTAL)
     Route: 064
     Dates: start: 20080701

REACTIONS (2)
  - HYPOSPADIAS [None]
  - MATERNAL DRUGS AFFECTING FOETUS [None]
